FAERS Safety Report 7466734-X (Version None)
Quarter: 2011Q2

REPORT INFORMATION
  Report Type: 
  Country: None (occurrence: None)
  Receive Date: 20110509
  Receipt Date: 20100824
  Transmission Date: 20111010
  Serious: No
  Sender: FDA-Public Use
  Company Number: US-ALEXION-A201001085

PATIENT
  Sex: Female

DRUGS (3)
  1. SOLIRIS [Suspect]
     Indication: PAROXYSMAL NOCTURNAL HAEMOGLOBINURIA
     Dosage: UNK
     Route: 042
  2. TAMOXIFEN CITRATE [Suspect]
     Dosage: UNK
  3. AMBIEN [Suspect]
     Dosage: UNK

REACTIONS (4)
  - PANIC ATTACK [None]
  - DYSPNOEA [None]
  - FATIGUE [None]
  - SINUSITIS [None]
